FAERS Safety Report 7837763 (Version 3)
Quarter: 2013Q2

REPORT INFORMATION
  Report Type: Spontaneous
  Country: US (occurrence: US)
  Receive Date: 20110302
  Receipt Date: 20130402
  Transmission Date: 20140414
  Serious: Yes (Hospitalization, Other)
  Sender: FDA-Public Use
  Company Number: US-PFIZER INC-2010047736

PATIENT
  Age: 90 Year
  Sex: Male

DRUGS (3)
  1. DILANTIN [Suspect]
     Indication: BRAIN CONTUSION
     Dosage: UNK
     Route: 048
     Dates: start: 20080413
  2. DILANTIN [Suspect]
     Indication: CONVULSION
  3. LEVAQUIN [Concomitant]
     Dosage: 500 MG, UNK
     Dates: end: 20080522

REACTIONS (4)
  - Stevens-Johnson syndrome [Unknown]
  - Toxic epidermal necrolysis [Unknown]
  - Drug reaction with eosinophilia and systemic symptoms [Unknown]
  - Acute generalised exanthematous pustulosis [Unknown]
